FAERS Safety Report 7803864-4 (Version None)
Quarter: 2011Q4

REPORT INFORMATION
  Report Type: 
  Country: None (occurrence: None)
  Receive Date: 20111010
  Receipt Date: 20111003
  Transmission Date: 20120403
  Serious: Yes (Disabling)
  Sender: FDA-Public Use
  Company Number: IE-PFIZER INC-2011194547

PATIENT
  Age: 69 Year
  Sex: Female
  Weight: 72 kg

DRUGS (6)
  1. PRAVASTATIN [Concomitant]
     Indication: BLOOD CHOLESTEROL INCREASED
     Dosage: 20 MG, DAILY
     Route: 048
  2. LYRICA [Suspect]
     Indication: NEURALGIA
     Dosage: 150 MG, AT NIGHT
     Dates: start: 20090701, end: 20110805
  3. LANSOPRAZOLE [Concomitant]
     Indication: ULCER
     Dosage: 30 MG, DAILY
     Route: 048
     Dates: start: 20080201
  4. LEVOTHYROXINE SODIUM [Concomitant]
     Indication: HYPOTHYROIDISM
     Dosage: 125 MG, DAILY
     Route: 048
  5. VALSARTAN [Concomitant]
     Indication: BLOOD PRESSURE
     Dosage: 80 MG, DAILY
     Dates: start: 20080801
  6. PREDNISOLONE [Concomitant]
     Indication: INFLAMMATION
     Dosage: UNK

REACTIONS (8)
  - DECREASED INTEREST [None]
  - INSOMNIA [None]
  - WEIGHT DECREASED [None]
  - DRUG WITHDRAWAL SYNDROME [None]
  - DIARRHOEA [None]
  - GAIT DISTURBANCE [None]
  - DECREASED APPETITE [None]
  - DEPRESSION [None]
